FAERS Safety Report 9713652 (Version 3)
Quarter: 2014Q1

REPORT INFORMATION
  Report Type: Spontaneous
  Country: US (occurrence: US)
  Receive Date: 20131126
  Receipt Date: 20140226
  Transmission Date: 20141002
  Serious: No
  Sender: FDA-Public Use
  Company Number: US-VERTEX PHARMACEUTICALS INC-2013-011366

PATIENT
  Age: 45 Year
  Sex: Female
  Weight: 120 kg

DRUGS (8)
  1. INCIVEK [Suspect]
     Indication: HEPATITIS C
     Dosage: 2 DF, TID
     Route: 048
     Dates: start: 20131118
  2. PEGASYS [Suspect]
     Indication: HEPATITIS C
     Dosage: 180 ?G, QW
     Route: 058
     Dates: start: 20131118
  3. RIBAVIRIN [Suspect]
     Indication: HEPATITIS C
     Dosage: 3 DF, BID
     Route: 048
     Dates: start: 20131118
  4. LEXAPRO [Concomitant]
     Indication: DEPRESSION
  5. TRAMADOL [Concomitant]
     Indication: PAIN
     Dosage: UNK, PRN
  6. BUSPIRONE [Concomitant]
     Indication: PAIN
     Dosage: UNK, PRN
  7. OTHER THERAPEUTIC PRODUCTS [Concomitant]
     Indication: SINUS CONGESTION
  8. OTHER THERAPEUTIC PRODUCTS [Concomitant]
     Indication: ABDOMINAL DISCOMFORT

REACTIONS (5)
  - Paraesthesia oral [Not Recovered/Not Resolved]
  - Lip disorder [Not Recovered/Not Resolved]
  - Dysphagia [Not Recovered/Not Resolved]
  - Drug dose omission [Not Recovered/Not Resolved]
  - Rectal haemorrhage [Recovered/Resolved]
